FAERS Safety Report 7536353-5 (Version None)
Quarter: 2011Q2

REPORT INFORMATION
  Report Type: 
  Country: None (occurrence: None)
  Receive Date: 20110609
  Receipt Date: 20110526
  Transmission Date: 20111010
  Serious: Yes (Life-Threatening, Hospitalization)
  Sender: FDA-Public Use
  Company Number: GB-AMGEN-QUU427406

PATIENT
  Age: 55 Year
  Sex: Female
  Weight: 64 kg

DRUGS (8)
  1. AZATHIOPRINE [Concomitant]
     Dosage: 100 MG, QD
     Route: 048
     Dates: start: 20100825
  2. ENBREL [Suspect]
     Indication: RHEUMATOID ARTHRITIS
     Dosage: 25 MG, QWK
     Dates: start: 20030508, end: 20100615
  3. METHOTREXATE [Suspect]
     Dosage: 10 MG, QWK
     Route: 048
     Dates: start: 20001215, end: 20100615
  4. PREDNISOLONE [Concomitant]
     Dosage: UNK
     Route: 048
  5. CALCIUM CARBONATE [Concomitant]
     Dosage: UNK UNK, UNK
  6. OMEPRAZOLE [Concomitant]
     Dosage: 10 MG, UNK
  7. ENBREL [Suspect]
     Dosage: 50 MG, QWK
     Route: 058
  8. CELECOXIB [Concomitant]
     Dosage: 200 MG, BID
     Route: 048

REACTIONS (1)
  - PNEUMONITIS [None]
